FAERS Safety Report 19118723 (Version 1)
Quarter: 2021Q2

REPORT INFORMATION
  Report Type: Spontaneous
  Country: DK (occurrence: DK)
  Receive Date: 20210410
  Receipt Date: 20210410
  Transmission Date: 20210717
  Serious: Yes (Other)
  Sender: FDA-Public Use
  Company Number: PHHY2018DK071825

PATIENT
  Age: 34 Year
  Sex: Female

DRUGS (3)
  1. OCTREOTIDE ACETATE. [Suspect]
     Active Substance: OCTREOTIDE ACETATE
     Indication: HYPOGLYCAEMIA
     Dosage: 20 MG, Q4W (INCREASE TO 20 MG EVERY FOURTH WEEK FROM GA 27 WEEKS)
     Route: 030
  2. OCTREOTIDE ACETATE. [Suspect]
     Active Substance: OCTREOTIDE ACETATE
     Dosage: 10 MG, Q4W (EVERY FOURTH WEEK, INITIAL DOSAGE)
     Route: 030
  3. OCTREOTIDE ACETATE. [Suspect]
     Active Substance: OCTREOTIDE ACETATE

REACTIONS (2)
  - Foetal growth restriction [Unknown]
  - Maternal exposure during pregnancy [Unknown]
